FAERS Safety Report 7414286-2 (Version None)
Quarter: 2011Q2

REPORT INFORMATION
  Report Type: 
  Country: None (occurrence: None)
  Receive Date: 20110414
  Receipt Date: 20110411
  Transmission Date: 20111010
  Serious: Yes (Other)
  Sender: FDA-Public Use
  Company Number: BR-PFIZER INC-2011079090

PATIENT
  Age: 42 Year
  Sex: Male
  Weight: 83 kg

DRUGS (3)
  1. XALATAN [Suspect]
     Indication: GLAUCOMA
     Dosage: UNK
     Route: 047
     Dates: start: 20070101
  2. ALPHAGAN Z [Concomitant]
     Dosage: UNK, 2X/DAY
     Dates: start: 20091201
  3. XALATAN [Suspect]
     Indication: GLAUCOMA
     Dosage: UNK, 1X/DAY
     Route: 047
     Dates: start: 20091201

REACTIONS (4)
  - BLINDNESS UNILATERAL [None]
  - EYE IRRITATION [None]
  - EYELID PAIN [None]
  - OCULAR HYPERAEMIA [None]
